FAERS Safety Report 16528824 (Version 1)
Quarter: 2019Q3

REPORT INFORMATION
  Report Type: Spontaneous
  Country: IT (occurrence: IT)
  Receive Date: 20190703
  Receipt Date: 20190703
  Transmission Date: 20191004
  Serious: Yes (Disabling, Other)
  Sender: FDA-Public Use
  Company Number: IT-BAUSCH-BL-2019-019203

PATIENT
  Age: 52 Year
  Sex: Female

DRUGS (1)
  1. NORMIX 200 MG [Suspect]
     Active Substance: RIFAXIMIN
     Indication: DIARRHOEA
     Dosage: 4 TABLETS DAILY
     Route: 065
     Dates: start: 20190619, end: 20190620

REACTIONS (3)
  - Motor dysfunction [Not Recovered/Not Resolved]
  - Peripheral sensory neuropathy [Not Recovered/Not Resolved]
  - Muscular weakness [Not Recovered/Not Resolved]

NARRATIVE: CASE EVENT DATE: 201906
